FAERS Safety Report 7332306-0 (Version None)
Quarter: 2011Q1

REPORT INFORMATION
  Report Type: 
  Country: None (occurrence: None)
  Receive Date: 20110304
  Receipt Date: 20110225
  Transmission Date: 20110831
  Serious: Yes (Hospitalization)
  Sender: FDA-Public Use
  Company Number: A0795343A

PATIENT
  Age: 67 Year
  Sex: Female
  Weight: 76.7 kg

DRUGS (5)
  1. GLIMEPIRIDE [Concomitant]
     Indication: DIABETES MELLITUS
     Dosage: 1MG PER DAY
     Route: 048
     Dates: start: 20090303
  2. MULTI-VITAMIN [Concomitant]
     Indication: VITAMIN SUPPLEMENTATION
  3. LIPITOR [Concomitant]
     Dosage: 10MG PER DAY
     Route: 048
     Dates: start: 20090213
  4. ASPIRIN [Concomitant]
     Indication: PAIN
     Dosage: 81MG PER DAY
     Route: 048
     Dates: start: 20090303
  5. PAZOPANIB [Suspect]
     Indication: SARCOMA
     Dosage: 800MG PER DAY
     Route: 048
     Dates: start: 20090619

REACTIONS (4)
  - HYPOTHYROIDISM [None]
  - FATIGUE [None]
  - DEPRESSION [None]
  - DECREASED APPETITE [None]
